FAERS Safety Report 4777991-2 (Version None)
Quarter: 2005Q3

REPORT INFORMATION
  Report Type: 
  Country: None (occurrence: None)
  Receive Date: 20050921
  Receipt Date: 20050901
  Transmission Date: 20060218
  Serious: Yes (Other)
  Sender: FDA-Public Use
  Company Number: GBS050918329

PATIENT
  Sex: Male

DRUGS (2)
  1. ATOMOXETINE HYDROCHLORIDE [Suspect]
  2. RISPERIDONE [Concomitant]

REACTIONS (3)
  - CONDITION AGGRAVATED [None]
  - DRUG INTERACTION [None]
  - EPILEPSY [None]
